FAERS Safety Report 5819290-3 (Version None)
Quarter: 2008Q3

REPORT INFORMATION
  Report Type: 
  Country: None (occurrence: None)
  Receive Date: 20080718
  Receipt Date: 20080703
  Transmission Date: 20090109
  Serious: Yes (Hospitalization)
  Sender: FDA-Public Use
  Company Number: 2008S1006274

PATIENT
  Age: 50 Year
  Sex: Male

DRUGS (7)
  1. PHENYTOIN [Suspect]
     Indication: EPILEPSY
     Dosage: 300 MG; DAILY
  2. OMEPRAZOLE [Suspect]
     Indication: DRUG USE FOR UNKNOWN INDICATION
  3. INSULIN [Concomitant]
  4. VITAMIN B COMP [Concomitant]
  5. ATORVASTATIN [Concomitant]
  6. SPIRONOLACTONE [Concomitant]
  7. PHENYTOIN [Concomitant]

REACTIONS (10)
  - ANAEMIA MACROCYTIC [None]
  - CEREBELLAR SYNDROME [None]
  - DRUG INTERACTION [None]
  - DYSARTHRIA [None]
  - GRAND MAL CONVULSION [None]
  - HEPATIC FUNCTION ABNORMAL [None]
  - LIVER DISORDER [None]
  - NYSTAGMUS [None]
  - PROTHROMBIN TIME PROLONGED [None]
  - THROMBOCYTHAEMIA [None]
